FAERS Safety Report 5251087-8 (Version None)
Quarter: 2007Q1

REPORT INFORMATION
  Report Type: 
  Country: None (occurrence: None)
  Receive Date: 20070228
  Receipt Date: 20060906
  Transmission Date: 20070707
  Serious: Yes (Other)
  Sender: FDA-Public Use
  Company Number: US-GLAXOSMITHKLINE-A0617818A

PATIENT
  Age: 62 Year
  Sex: Female
  Weight: 63.6 kg

DRUGS (8)
  1. LAMICTAL [Suspect]
     Indication: BIPOLAR DISORDER
     Route: 048
     Dates: start: 20050907
  2. PAXIL CR [Concomitant]
  3. CAMPRAL [Concomitant]
  4. SEROQUEL [Concomitant]
  5. MICARDIS [Concomitant]
  6. HYDROCHLOROTHIAZIDE [Concomitant]
  7. DETROL [Concomitant]
  8. NEXIUM [Concomitant]

REACTIONS (1)
  - MOUTH ULCERATION [None]
